FAERS Safety Report 24230228 (Version 3)
Quarter: 2024Q4

REPORT INFORMATION
  Report Type: Report from Study
  Country: DE (occurrence: DE)
  Receive Date: 20240820
  Receipt Date: 20241007
  Transmission Date: 20250115
  Serious: Yes (Hospitalization, Other)
  Sender: ABBVIE
  Company Number: DE-ABBVIE-5884169

PATIENT
  Sex: Male
  Weight: 63 kg

DRUGS (17)
  1. CARBIDOPA\LEVODOPA [Suspect]
     Active Substance: CARBIDOPA\LEVODOPA
     Indication: Parkinson^s disease
     Dosage: CRD: 2.9 ML/H; ED 1.2 ML
     Route: 050
     Dates: start: 20200105
  2. CARBIDOPA\LEVODOPA [Suspect]
     Active Substance: CARBIDOPA\LEVODOPA
     Dosage: MD: 6.0ML; CRD: 2.8ML/H; ED: 1.5ML
     Route: 050
  3. ESOMEPRAZOLE [Concomitant]
     Active Substance: ESOMEPRAZOLE
     Indication: Product used for unknown indication
     Dosage: FORM STRENGTH: 20 MILLIGRAM
  4. JANUVIA [Concomitant]
     Active Substance: SITAGLIPTIN PHOSPHATE
     Indication: Product used for unknown indication
     Dosage: FORM STRENGTH: 100 MILLIGRAM
  5. METFORMIN HYDROCHLORIDE [Concomitant]
     Active Substance: METFORMIN HYDROCHLORIDE
     Indication: Product used for unknown indication
     Dosage: FORM STRENGTH: 1000 MILLIGRAM
  6. FERRO-SANOL DUODENAL [Concomitant]
     Active Substance: FERROUS GLYCINE SULFATE
     Indication: Product used for unknown indication
     Dosage: FORM STRENGTH: 100 MILLIGRAM
     Route: 048
  7. BISOPROLOL FUMARATE [Concomitant]
     Active Substance: BISOPROLOL FUMARATE
     Indication: Product used for unknown indication
     Dosage: FORM STRENGTH: 5 MILLIGRAM
  8. Clozapine 1A-Pharma [Concomitant]
     Indication: Product used for unknown indication
     Dosage: FORM STRENGTH: 25 MILLIGRAM
  9. ALLOPURINOL [Concomitant]
     Active Substance: ALLOPURINOL
     Indication: Product used for unknown indication
     Dosage: FORM STRENGTH: 300 MILLIGRAM?FORM STRENGTH: 1 MILLIGRAM
  10. SIMVASTATIN [Concomitant]
     Active Substance: SIMVASTATIN
     Indication: Product used for unknown indication
     Dosage: FORM STRENGTH: 20 MILLIGRAM
  11. LEVOTHYROXINE SODIUM [Concomitant]
     Active Substance: LEVOTHYROXINE SODIUM
     Indication: Product used for unknown indication
     Dosage: FORM STRENGTH: 75 MICROGRAM
  12. ASS-ratiopharm TAH [Concomitant]
     Indication: Product used for unknown indication
     Dosage: FORM STRENGTH: 100 MILLIGRAM
  13. APIXABAN [Concomitant]
     Active Substance: APIXABAN
     Indication: Product used for unknown indication
  14. GLIMEPIRID HEXAL [Concomitant]
     Indication: Product used for unknown indication
     Dosage: FORM STRENGTH: 1 MILLIGRAM
  15. BENSERAZIDE HYDROCHLORIDE\LEVODOPA [Concomitant]
     Active Substance: BENSERAZIDE HYDROCHLORIDE\LEVODOPA
     Indication: Product used for unknown indication
     Dosage: DISPERSIBLE TABLETS?FORM STRENGTH: 125 MILLIGRAM
  16. TORSEMIDE [Concomitant]
     Active Substance: TORSEMIDE
     Indication: Product used for unknown indication
  17. SODIUM CHLORIDE [Concomitant]
     Active Substance: SODIUM CHLORIDE
     Indication: Product used for unknown indication

REACTIONS (26)
  - Volvulus [Not Recovered/Not Resolved]
  - Osteoarthritis [Unknown]
  - Pseudopolyp [Unknown]
  - Mechanical ileus [Unknown]
  - Gastric mucosa erythema [Unknown]
  - Red blood cell sedimentation rate increased [Unknown]
  - Colon dysplasia [Unknown]
  - Dyspepsia [Unknown]
  - Reflux laryngitis [Unknown]
  - Large intestine polyp [Unknown]
  - Hiatus hernia [Unknown]
  - Muscle atrophy [Unknown]
  - Ileus [Unknown]
  - Large intestine polyp [Recovered/Resolved]
  - Dysphagia [Unknown]
  - Gastritis erosive [Unknown]
  - Pneumonia aspiration [Unknown]
  - Inflammation [Unknown]
  - Bronchitis chronic [Unknown]
  - Anal incontinence [Unknown]
  - Colorectal adenoma [Recovered/Resolved]
  - Osteochondrosis [Unknown]
  - Mobility decreased [Unknown]
  - General physical health deterioration [Unknown]
  - Hepatic cyst [Unknown]
  - Device dislocation [Unknown]
